FAERS Safety Report 6558335-2 (Version None)
Quarter: 2010Q1

REPORT INFORMATION
  Report Type: 
  Country: None (occurrence: None)
  Receive Date: 20100129
  Receipt Date: 20100118
  Transmission Date: 20100710
  Serious: Yes (Other)
  Sender: FDA-Public Use
  Company Number: US-JNJFOC-20100108440

PATIENT
  Sex: Male

DRUGS (5)
  1. TYLENOL-500 [Suspect]
     Indication: PROPHYLAXIS
     Dosage: 650 MG EVERY MONTH AT THE TIME OF HIS IMMUNOGLOBULIN INFUSIONS AND AS NEEDED FOR HIS BACK DISORDER
  2. TYLENOL-500 [Suspect]
     Indication: BACK DISORDER
     Dosage: 650 MG EVERY MONTH AT THE TIME OF HIS IMMUNOGLOBULIN INFUSIONS AND AS NEEDED FOR HIS BACK DISORDER
  3. BENADRYL [Suspect]
     Indication: PROPHYLAXIS
     Route: 048
  4. BENADRYL [Suspect]
     Indication: SINUS DISORDER
     Route: 048
  5. IMMUNE GLOBULIN NOS [Concomitant]

REACTIONS (5)
  - CHROMATURIA [None]
  - GAIT DISTURBANCE [None]
  - NAUSEA [None]
  - PRODUCT QUALITY ISSUE [None]
  - VOMITING [None]
